FAERS Safety Report 13176379 (Version 1)
Quarter: 2017Q1

REPORT INFORMATION
  Report Type: Spontaneous
  Country: US (occurrence: US)
  Receive Date: 20170201
  Receipt Date: 20170201
  Transmission Date: 20170428
  Serious: Yes (Other)
  Sender: FDA-Public Use
  Company Number: US-PFIZER INC-2017038615

PATIENT
  Age: 70 Year
  Sex: Female
  Weight: 168 kg

DRUGS (8)
  1. IRON [Concomitant]
     Active Substance: IRON
     Dosage: 15 MG, UNK
     Route: 048
  2. PROTONIX [Concomitant]
     Active Substance: PANTOPRAZOLE SODIUM
     Dosage: 40 MG, UNK
     Dates: start: 20140106
  3. DAILY VITE [Concomitant]
     Active Substance: VITAMINS
     Dosage: 1 DF, DAILY
     Route: 048
  4. IBRANCE [Suspect]
     Active Substance: PALBOCICLIB
     Indication: BREAST CANCER
     Dosage: 100 MG, CYCLIC, (DAILY ON DAYS 1-21, 7 DAYS OFF)
     Route: 048
     Dates: start: 20160908
  5. FISH OIL [Concomitant]
     Active Substance: FISH OIL
     Dosage: 1000 MG, UNK
     Route: 048
  6. FEMARA [Suspect]
     Active Substance: LETROZOLE
     Dosage: 2.5 MG, DAILY
     Route: 048
     Dates: start: 20160811
  7. CALCIUM 600 + D [Concomitant]
     Active Substance: CALCIUM\VITAMIN D
     Dosage: 2 DF, DAILY, (CALCIUM CARBONATE 600 MG, COLECALCIFEROL 1500 MG) 400UNIT
     Route: 048
  8. ARMOUR THYROID [Concomitant]
     Active Substance: THYROID, PORCINE
     Dosage: 60 MG, DAILY
     Route: 048

REACTIONS (1)
  - Leukopenia [Unknown]
